FAERS Safety Report 18941829 (Version 1)
Quarter: 2021Q1

REPORT INFORMATION
  Report Type: Report from Study
  Country: CA (occurrence: CA)
  Receive Date: 20210225
  Receipt Date: 20210225
  Transmission Date: 20210420
  Serious: Yes (Other)
  Sender: FDA-Public Use
  Company Number: CA-PFIZER INC-2021184289

PATIENT
  Sex: Female

DRUGS (4)
  1. HYDROXYQUINOLINE SULFATE [Concomitant]
     Active Substance: OXYQUINOLINE SULFATE
     Route: 065
  2. SULFASALAZINE. [Concomitant]
     Active Substance: SULFASALAZINE
     Route: 065
  3. METHOTREXATE SODIUM. [Suspect]
     Active Substance: METHOTREXATE SODIUM
     Indication: RHEUMATOID ARTHRITIS
     Dosage: UNK
     Route: 058
  4. XELJANZ [Concomitant]
     Active Substance: TOFACITINIB CITRATE
     Dosage: UNK
     Route: 065

REACTIONS (8)
  - Cervical spinal stenosis [Unknown]
  - Product use issue [Unknown]
  - Gait disturbance [Unknown]
  - Joint stiffness [Unknown]
  - Off label use [Unknown]
  - Blood pressure increased [Unknown]
  - Drug ineffective [Unknown]
  - Myalgia [Unknown]
